FAERS Safety Report 7282230-7 (Version None)
Quarter: 2011Q1

REPORT INFORMATION
  Report Type: 
  Country: None (occurrence: None)
  Receive Date: 20110125
  Receipt Date: 20110114
  Transmission Date: 20110831
  Serious: Yes (Disabling, Other)
  Sender: FDA-Public Use
  Company Number: 2011MA000452

PATIENT
  Sex: Male

DRUGS (3)
  1. CON MEDS [Concomitant]
  2. METOCLOPRAMIDE [Suspect]
     Indication: GASTROINTESTINAL DISORDER
     Dosage: PO
     Route: 048
     Dates: start: 20080701, end: 20091001
  3. PREV MEDS [Concomitant]

REACTIONS (10)
  - ECONOMIC PROBLEM [None]
  - ACTIVITIES OF DAILY LIVING IMPAIRED [None]
  - PARTNER STRESS [None]
  - MOVEMENT DISORDER [None]
  - DEFORMITY [None]
  - NERVOUS SYSTEM DISORDER [None]
  - ANXIETY [None]
  - PAIN [None]
  - MULTIPLE INJURIES [None]
  - EXTRAPYRAMIDAL DISORDER [None]
